FAERS Safety Report 7321637-6 (Version None)
Quarter: 2011Q1

REPORT INFORMATION
  Report Type: 
  Country: None (occurrence: None)
  Receive Date: 20110228
  Receipt Date: 20100917
  Transmission Date: 20110831
  Serious: No
  Sender: FDA-Public Use
  Company Number: A0886170A

PATIENT
  Age: 49 Year
  Sex: Female

DRUGS (3)
  1. GEODON [Suspect]
     Indication: DEPRESSION
     Dosage: 20MG PER DAY
     Route: 048
     Dates: start: 20070101
  2. ZOLOFT [Concomitant]
     Dosage: 100MG PER DAY
  3. VALTREX [Suspect]
     Indication: GENITAL HERPES
     Dosage: 500MG TWICE PER DAY
     Route: 048

REACTIONS (3)
  - ANXIETY [None]
  - DYSPHAGIA [None]
  - DISCOMFORT [None]
